FAERS Safety Report 24421205 (Version 1)
Quarter: 2024Q4

REPORT INFORMATION
  Report Type: Report from Study
  Country: GB (occurrence: GB)
  Receive Date: 20241010
  Receipt Date: 20241010
  Transmission Date: 20250115
  Serious: Yes (Hospitalization, Other)
  Sender: SANDOZ
  Company Number: GB-002147023-NVSC2022GB224902

PATIENT
  Sex: Female

DRUGS (6)
  1. OMNITROPE [Suspect]
     Active Substance: SOMATROPIN
     Dosage: 0.4 MG
     Route: 058
     Dates: end: 20221002
  2. OMNITROPE [Suspect]
     Active Substance: SOMATROPIN
     Indication: Growth hormone deficiency
     Dosage: 0.6 MG
     Route: 058
     Dates: end: 20221002
  3. OMNITROPE [Suspect]
     Active Substance: SOMATROPIN
     Dosage: UNK (0.6)
     Route: 058
  4. OMNITROPE [Suspect]
     Active Substance: SOMATROPIN
     Dosage: UNK (ULTRA) 8
     Route: 065
  5. OMNITROPE [Suspect]
     Active Substance: SOMATROPIN
     Dosage: UNK(SP 5M)
     Route: 058
  6. OMNITROPE [Suspect]
     Active Substance: SOMATROPIN
     Dosage: UNK(ULTRA 5)
     Route: 065

REACTIONS (7)
  - Hospitalisation [Unknown]
  - Brain injury [Unknown]
  - Anger [Unknown]
  - Aggression [Unknown]
  - Agitation [Unknown]
  - Product availability issue [Unknown]
  - Product storage error [Unknown]
